FAERS Safety Report 22985402 (Version 3)
Quarter: 2024Q1

REPORT INFORMATION
  Report Type: Spontaneous
  Country: JP (occurrence: JP)
  Receive Date: 20230926
  Receipt Date: 20240102
  Transmission Date: 20240409
  Serious: Yes (Hospitalization, Other)
  Sender: FDA-Public Use
  Company Number: JP-MSD-M2023-39725

PATIENT
  Age: 6 Decade
  Sex: Male

DRUGS (3)
  1. KEYTRUDA [Suspect]
     Active Substance: PEMBROLIZUMAB
     Indication: Non-small cell lung cancer stage IV
     Dosage: 200 MILLIGRAM, Q3W
     Route: 041
     Dates: start: 20210722, end: 202307
  2. PEMETREXED DISODIUM [Concomitant]
     Active Substance: PEMETREXED DISODIUM
     Indication: Non-small cell lung cancer stage IV
     Dosage: 500 MILLIGRAM/SQ. METER, Q3W
     Route: 041
     Dates: start: 20210722, end: 202307
  3. CARBOPLATIN [Concomitant]
     Active Substance: CARBOPLATIN
     Indication: Non-small cell lung cancer stage IV
     Dosage: 300 MILLIGRAM/SQ. METER, Q3W
     Route: 041
     Dates: start: 20210722, end: 202110

REACTIONS (1)
  - Immune-mediated renal disorder [Recovering/Resolving]

NARRATIVE: CASE EVENT DATE: 20230713
